FAERS Safety Report 7884043-1 (Version None)
Quarter: 2011Q4

REPORT INFORMATION
  Report Type: 
  Country: None (occurrence: None)
  Receive Date: 20111102
  Receipt Date: 20111021
  Transmission Date: 20120403
  Serious: Yes (Hospitalization)
  Sender: FDA-Public Use
  Company Number: TR-COVIDIEN/TYCO HEALTHCARE/MALLINCKRODT-T201102301

PATIENT
  Age: 79 Year
  Sex: Male

DRUGS (1)
  1. EXALGO [Suspect]
     Indication: PAIN
     Dosage: 8 MG, UNK
     Route: 048
     Dates: start: 20111019, end: 20111021

REACTIONS (3)
  - LOSS OF CONSCIOUSNESS [None]
  - RESPIRATION ABNORMAL [None]
  - SOMNOLENCE [None]
